FAERS Safety Report 11372185 (Version 1)
Quarter: 2015Q3

REPORT INFORMATION
  Report Type: Spontaneous
  Country: US (occurrence: US)
  Receive Date: 20150811
  Receipt Date: 20150811
  Transmission Date: 20151125
  Serious: No
  Sender: FDA-Public Use
  Company Number: US-ELI_LILLY_AND_COMPANY-US201309004906

PATIENT
  Age: 72 Year
  Sex: Male
  Weight: 99.32 kg

DRUGS (1)
  1. AXIRON [Suspect]
     Active Substance: TESTOSTERONE
     Indication: BLOOD TESTOSTERONE DECREASED
     Dosage: 30 MG, QD
     Route: 061
     Dates: start: 20130820, end: 20130910

REACTIONS (3)
  - Asthenia [Unknown]
  - Incorrect dose administered [Unknown]
  - Headache [Recovered/Resolved]
